FAERS Safety Report 5804620-9 (Version None)
Quarter: 2008Q3

REPORT INFORMATION
  Report Type: 
  Country: None (occurrence: None)
  Receive Date: 20080702
  Receipt Date: 20080218
  Transmission Date: 20090109
  Serious: Yes (Other)
  Sender: FDA-Public Use
  Company Number: 547867

PATIENT
  Age: 42 Year
  Sex: Male

DRUGS (4)
  1. CLONAZEPAM [Suspect]
     Indication: BIPOLAR DISORDER
     Dosage: 1 MG 3 PER DAY
     Dates: start: 20050101
  2. ALCOHOL (ALCOHOL) [Suspect]
     Indication: DRUG USE FOR UNKNOWN INDICATION
  3. LEXAPRO [Concomitant]
  4. ZYPREXA [Concomitant]

REACTIONS (2)
  - ACCIDENT [None]
  - GUN SHOT WOUND [None]
